FAERS Safety Report 6767891-0 (Version None)
Quarter: 2010Q2

REPORT INFORMATION
  Report Type: 
  Country: None (occurrence: None)
  Receive Date: 20100614
  Receipt Date: 20100604
  Transmission Date: 20101027
  Serious: Yes (Other)
  Sender: FDA-Public Use
  Company Number: US-JNJCH-2010013788

PATIENT
  Age: 63 Year
  Sex: Female

DRUGS (2)
  1. LUBRIDERM DAILY MOISTURE [Suspect]
     Indication: DRY SKIN
     Dosage: TEXT:UNSPECIFIED
     Route: 061
  2. ADVAIR DISKUS 100/50 [Concomitant]
     Indication: DRUG USE FOR UNKNOWN INDICATION
     Dosage: TEXT:UNSPECIFIED
     Route: 055

REACTIONS (5)
  - APPLICATION SITE EXFOLIATION [None]
  - APPLICATION SITE RASH [None]
  - APPLICATION SITE VESICLES [None]
  - CONDITION AGGRAVATED [None]
  - HYPERSENSITIVITY [None]
